FAERS Safety Report 13443342 (Version 1)
Quarter: 2017Q2

REPORT INFORMATION
  Report Type: Spontaneous
  Country: US (occurrence: US)
  Receive Date: 20170413
  Receipt Date: 20170413
  Transmission Date: 20170830
  Serious: Yes (Death)
  Sender: FDA-Public Use
  Company Number: None

PATIENT
  Age: 66 Year
  Sex: Female

DRUGS (1)
  1. STIVARGA [Suspect]
     Active Substance: REGORAFENIB
     Indication: COLON CANCER
     Dosage: 160MG DAILY 21 DAYS ON AND 7 DAYS OFF PO
     Route: 048
     Dates: start: 20170315

REACTIONS (1)
  - Death [None]

NARRATIVE: CASE EVENT DATE: 20170410
